FAERS Safety Report 9360172 (Version 1)
Quarter: 2013Q2

REPORT INFORMATION
  Report Type: Spontaneous
  Country: US (occurrence: US)
  Receive Date: 20130621
  Receipt Date: 20130621
  Transmission Date: 20140414
  Serious: No
  Sender: FDA-Public Use
  Company Number: US-US-EMD SERONO, INC.-7011037

PATIENT
  Sex: Female

DRUGS (1)
  1. REBIF [Suspect]
     Indication: MULTIPLE SCLEROSIS
     Route: 058
     Dates: start: 20040407

REACTIONS (7)
  - Joint injury [Recovered/Resolved]
  - Fall [Recovered/Resolved]
  - Coordination abnormal [Unknown]
  - Muscular weakness [Unknown]
  - Headache [Unknown]
  - Injection site bruising [Unknown]
  - Influenza like illness [Unknown]
